FAERS Safety Report 4278501-9 (Version None)
Quarter: 2004Q1

REPORT INFORMATION
  Report Type: 
  Country: None (occurrence: None)
  Receive Date: 20040123
  Receipt Date: 20040113
  Transmission Date: 20041129
  Serious: Yes (Death)
  Sender: FDA-Public Use
  Company Number: WAES 0401GBR00096

PATIENT
  Age: 89 Year
  Sex: Female

DRUGS (4)
  1. AMILORIDE HYDROCHLORIDE AND FUROSEMIDE [Concomitant]
     Indication: OEDEMA
     Dates: start: 20010515
  2. BENDROFLUMETHIAZIDE [Concomitant]
     Indication: OEDEMA
     Route: 048
     Dates: start: 20000505
  3. VIOXX [Suspect]
     Indication: ARTHRALGIA
     Route: 048
     Dates: start: 20031223, end: 20031229
  4. VIOXX [Suspect]
     Indication: IMMOBILE
     Route: 048
     Dates: start: 20031223, end: 20031229

REACTIONS (1)
  - GASTRIC ULCER PERFORATION [None]
